FAERS Safety Report 9000391 (Version 5)
Quarter: 2013Q2

REPORT INFORMATION
  Report Type: Spontaneous
  Country: US (occurrence: US)
  Receive Date: 20130107
  Receipt Date: 20130527
  Transmission Date: 20140414
  Serious: No
  Sender: FDA-Public Use
  Company Number: US-BIOGENIDEC-2012BI065128

PATIENT
  Age: 36 Year
  Sex: Female

DRUGS (2)
  1. TYSABRI [Suspect]
     Indication: MULTIPLE SCLEROSIS
     Route: 042
     Dates: start: 20121116
  2. TYSABRI [Suspect]
     Indication: MULTIPLE SCLEROSIS
     Route: 042
     Dates: end: 20130225

REACTIONS (6)
  - Infusion related reaction [Recovered/Resolved]
  - Pruritus [Recovered/Resolved with Sequelae]
  - Rash [Recovered/Resolved]
  - Adverse reaction [Unknown]
  - Hypersensitivity [Unknown]
  - Urticaria [Recovered/Resolved]
